FAERS Safety Report 5788833-0 (Version None)
Quarter: 2008Q2

REPORT INFORMATION
  Report Type: 
  Country: None (occurrence: None)
  Receive Date: 20080626
  Receipt Date: 20080625
  Transmission Date: 20081010
  Serious: Yes (Other)
  Sender: FDA-Public Use
  Company Number: US-RB-002148-08

PATIENT
  Sex: Male

DRUGS (2)
  1. SUBOXONE [Suspect]
     Indication: DRUG DEPENDENCE
     Dosage: DOSING INFORMATION UNKNOWN
     Dates: end: 20080602
  2. VIVITROL [Suspect]
     Indication: DRUG DEPENDENCE
     Route: 030
     Dates: start: 20080603

REACTIONS (8)
  - COLD SWEAT [None]
  - DRUG DEPENDENCE [None]
  - HALLUCINATION, AUDITORY [None]
  - INSOMNIA [None]
  - OFF LABEL USE [None]
  - RESTLESSNESS [None]
  - SUICIDAL IDEATION [None]
  - TREMOR [None]
